FAERS Safety Report 7356319-8 (Version None)
Quarter: 2011Q1

REPORT INFORMATION
  Report Type: 
  Country: None (occurrence: None)
  Receive Date: 20110316
  Receipt Date: 20110314
  Transmission Date: 20110831
  Serious: Yes (Other)
  Sender: FDA-Public Use
  Company Number: US-AMGEN-USASP2011013934

PATIENT
  Sex: Female
  Weight: 69.4 kg

DRUGS (1)
  1. NPLATE [Suspect]
     Indication: IDIOPATHIC THROMBOCYTOPENIC PURPURA
     Dates: start: 20110101

REACTIONS (3)
  - THERAPEUTIC RESPONSE DECREASED [None]
  - MENORRHAGIA [None]
  - TRANSFUSION [None]
